FAERS Safety Report 18673499 (Version 1)
Quarter: 2020Q4

REPORT INFORMATION
  Report Type: Spontaneous
  Country: JP (occurrence: JP)
  Receive Date: 20201229
  Receipt Date: 20201229
  Transmission Date: 20210114
  Serious: Yes (Hospitalization)
  Sender: FDA-Public Use
  Company Number: JP-TEVA-2020-JP-1862994

PATIENT
  Age: 77 Year
  Sex: Male
  Weight: 60.3 kg

DRUGS (6)
  1. FAVIPIRAVIR [Suspect]
     Active Substance: FAVIPIRAVIR
     Indication: COVID-19 PNEUMONIA
     Dosage: 1600 MILLIGRAM DAILY; ON DAYS 2- 12
     Route: 065
  2. PREDNISOLONE. [Suspect]
     Active Substance: PREDNISOLONE
     Indication: COVID-19 PNEUMONIA
     Dosage: 30 MG
     Route: 065
  3. AZITHROMYCIN ANHYDROUS. [Suspect]
     Active Substance: AZITHROMYCIN ANHYDROUS
     Indication: COVID-19 PNEUMONIA
     Dosage: 500 MILLIGRAM DAILY;
     Route: 065
  4. METHYLPREDNISOLONE. [Suspect]
     Active Substance: METHYLPREDNISOLONE
     Indication: COVID-19 PNEUMONIA
     Dosage: 500 MILLIGRAM DAILY;
     Route: 042
  5. FAVIPIRAVIR [Suspect]
     Active Substance: FAVIPIRAVIR
     Indication: COVID-19 PNEUMONIA
     Dosage: 3600 MILLIGRAM DAILY; ON DAY 1
     Route: 065
  6. IMMUNOGLOBULIN [IMMUNOGLOBULINS NOS] [Suspect]
     Active Substance: IMMUNE GLOBULIN NOS
     Indication: COVID-19 PNEUMONIA
     Dosage: 5000 MILLIGRAM DAILY;
     Route: 042

REACTIONS (2)
  - Off label use [Unknown]
  - Pneumothorax [Recovering/Resolving]
